FAERS Safety Report 6065431-5 (Version None)
Quarter: 2009Q1

REPORT INFORMATION
  Report Type: 
  Country: None (occurrence: None)
  Receive Date: 20090130
  Receipt Date: 20090115
  Transmission Date: 20090719
  Serious: Yes (Other)
  Sender: FDA-Public Use
  Company Number: 2009EK000012

PATIENT
  Age: 31 Year
  Sex: Female

DRUGS (5)
  1. NICARDIPINE HCL [Suspect]
     Indication: OFF LABEL USE
     Dosage: 4 MG;QH;IV
     Route: 042
  2. NICARDIPINE HCL [Suspect]
     Indication: TOCOLYSIS
     Dosage: 4 MG;QH;IV
     Route: 042
  3. NIFEDIPINE [Suspect]
     Indication: TOCOLYSIS
     Dosage: 20 MG;Q12H;PO : 40 MG;PO
     Route: 048
  4. ROPIVACAINE [Concomitant]
  5. SUFENTANIL [Concomitant]

REACTIONS (12)
  - ACUTE PULMONARY OEDEMA [None]
  - AKINESIA [None]
  - C-REACTIVE PROTEIN INCREASED [None]
  - DRUG EXPOSURE DURING PREGNANCY [None]
  - EJECTION FRACTION DECREASED [None]
  - HYPOXIA [None]
  - OEDEMA PERIPHERAL [None]
  - OFF LABEL USE [None]
  - PERICARDIAL EFFUSION [None]
  - PLEURAL EFFUSION [None]
  - PULMONARY EMBOLISM [None]
  - WHITE BLOOD CELL COUNT INCREASED [None]
